FAERS Safety Report 8618875-9 (Version None)
Quarter: 2012Q3

REPORT INFORMATION
  Report Type: 
  Country: None (occurrence: None)
  Receive Date: 20120824
  Receipt Date: 20120821
  Transmission Date: 20120928
  Serious: Yes (Hospitalization)
  Sender: FDA-Public Use
  Company Number: IT-PFIZER INC-2012205498

PATIENT
  Sex: Female

DRUGS (1)
  1. CARBOPLATIN [Suspect]

REACTIONS (4)
  - BRONCHOSPASM [None]
  - MUSCLE RIGIDITY [None]
  - LARYNGEAL OEDEMA [None]
  - URTICARIA [None]
